FAERS Safety Report 14555751 (Version 1)
Quarter: 2018Q1

REPORT INFORMATION
  Report Type: Report from Study
  Country: None (occurrence: BR)
  Receive Date: 20180221
  Receipt Date: 20180221
  Transmission Date: 20180509
  Serious: Yes (Other)
  Sender: FDA-Public Use
  Company Number: BR-ABBVIE-18K-020-2260911-00

PATIENT
  Age: 60 Year
  Sex: Female
  Weight: 68 kg

DRUGS (1)
  1. HUMIRA [Suspect]
     Active Substance: ADALIMUMAB
     Indication: RHEUMATOID ARTHRITIS
     Route: 058
     Dates: start: 20070201

REACTIONS (8)
  - Weight increased [Not Recovered/Not Resolved]
  - Hand deformity [Recovering/Resolving]
  - Glaucoma [Not Recovered/Not Resolved]
  - Pain in extremity [Recovering/Resolving]
  - Joint swelling [Recovering/Resolving]
  - Oedema peripheral [Recovering/Resolving]
  - Peripheral swelling [Recovering/Resolving]
  - Arthralgia [Recovering/Resolving]

NARRATIVE: CASE EVENT DATE: 201712
